FAERS Safety Report 9408154 (Version 2)
Quarter: 2019Q4

REPORT INFORMATION
  Report Type: Spontaneous
  Country: DE (occurrence: DE)
  Receive Date: 20130718
  Receipt Date: 20191007
  Transmission Date: 20200122
  Serious: Yes (Other)
  Sender: FDA-Public Use
  Company Number: DE-PFIZER INC-2013205369

PATIENT
  Age: 66 Year
  Sex: Male

DRUGS (3)
  1. ANIDULAFUNGIN [Suspect]
     Active Substance: ANIDULAFUNGIN
     Indication: FUNGAL DISEASE CARRIER
     Dosage: UNK
  2. VANCOMYCIN [Concomitant]
     Active Substance: VANCOMYCIN
     Indication: ANTI-INFECTIVE THERAPY
     Dosage: 1 G, 2X/DAY
  3. LEVOFLOXACIN. [Concomitant]
     Active Substance: LEVOFLOXACIN
     Indication: ANTI-INFECTIVE THERAPY
     Dosage: 500 MG, 2X/DAY
     Route: 042

REACTIONS (3)
  - Cardiac index decreased [Recovered/Resolved]
  - Haemodynamic instability [Recovered/Resolved]
  - Cardiac failure [Recovered/Resolved]
